FAERS Safety Report 7802529-2 (Version None)
Quarter: 2011Q4

REPORT INFORMATION
  Report Type: 
  Country: None (occurrence: None)
  Receive Date: 20111007
  Receipt Date: 20110922
  Transmission Date: 20120403
  Serious: Yes (Other)
  Sender: FDA-Public Use
  Company Number: ES-EISAI INC-E7389-01582-SPO-ES

PATIENT
  Sex: Female

DRUGS (2)
  1. HALAVEN [Suspect]
     Route: 042
     Dates: start: 20110715, end: 20110722
  2. HALAVEN [Suspect]
     Route: 042
     Dates: start: 20110909, end: 20110909

REACTIONS (6)
  - MUCOSAL INFLAMMATION [None]
  - DYSPNOEA [None]
  - NEUTROPENIA [None]
  - PNEUMONIA [None]
  - PYREXIA [None]
  - THROMBOCYTOPENIA [None]
